FAERS Safety Report 14305478 (Version 1)
Quarter: 2017Q4

REPORT INFORMATION
  Report Type: Spontaneous
  Country: US (occurrence: US)
  Receive Date: 20171219
  Receipt Date: 20171219
  Transmission Date: 20180321
  Serious: Yes (Other)
  Sender: FDA-Public Use
  Company Number: US-OTSUKA-J20104401

PATIENT
  Age: 15 Year
  Sex: Male
  Weight: 104.76 kg

DRUGS (3)
  1. ABILIFY [Suspect]
     Active Substance: ARIPIPRAZOLE
     Indication: PRODUCT USED FOR UNKNOWN INDICATION
     Dosage: 15 MG, UNK
     Route: 065
  2. LITHIUM. [Concomitant]
     Active Substance: LITHIUM
     Indication: PRODUCT USED FOR UNKNOWN INDICATION
     Dosage: 600 MG, BID
     Route: 065
  3. CLONAZEPAM. [Concomitant]
     Active Substance: CLONAZEPAM
     Indication: PRODUCT USED FOR UNKNOWN INDICATION
     Dosage: AT BED TIME.
     Route: 065

REACTIONS (8)
  - Insomnia [Unknown]
  - Constipation [Unknown]
  - Logorrhoea [Unknown]
  - Increased appetite [Unknown]
  - Memory impairment [Unknown]
  - Type 2 diabetes mellitus [Unknown]
  - Akathisia [Unknown]
  - Weight increased [Unknown]
